FAERS Safety Report 6846252-X (Version None)
Quarter: 2010Q3

REPORT INFORMATION
  Report Type: 
  Country: None (occurrence: None)
  Receive Date: 20100715
  Receipt Date: 20070917
  Transmission Date: 20110219
  Serious: No
  Sender: FDA-Public Use
  Company Number: US-PFIZER INC-2007078143

PATIENT
  Sex: Female
  Weight: 87.272 kg

DRUGS (7)
  1. CHANTIX [Suspect]
     Indication: SMOKING CESSATION THERAPY
     Dates: start: 20070910
  2. AMBIEN [Concomitant]
  3. TRAZODONE HYDROCHLORIDE [Concomitant]
  4. MELLARIL [Concomitant]
  5. XANAX [Concomitant]
  6. BUSPAR [Concomitant]
  7. FLEXERIL [Concomitant]

REACTIONS (1)
  - SLEEP DISORDER [None]
